FAERS Safety Report 7966465-3 (Version None)
Quarter: 2011Q4

REPORT INFORMATION
  Report Type: 
  Country: None (occurrence: None)
  Receive Date: 20111208
  Receipt Date: 20111007
  Transmission Date: 20120403
  Serious: Yes (Other)
  Sender: FDA-Public Use
  Company Number: CA-ROCHE-GNE305461

PATIENT
  Sex: Female

DRUGS (2)
  1. XOLAIR [Suspect]
     Route: 058
     Dates: start: 20110406
  2. XOLAIR [Suspect]
     Indication: ASTHMA
     Route: 058
     Dates: start: 20050722

REACTIONS (10)
  - ASTHMA [None]
  - FEELING ABNORMAL [None]
  - CHEST PAIN [None]
  - FATIGUE [None]
  - CHEST DISCOMFORT [None]
  - COUGH [None]
  - ECZEMA [None]
  - FURUNCLE [None]
  - DIABETES MELLITUS [None]
  - UNDERDOSE [None]
